FAERS Safety Report 19984428 (Version 1)
Quarter: 2021Q4

REPORT INFORMATION
  Report Type: Spontaneous
  Country: IN (occurrence: IN)
  Receive Date: 20211021
  Receipt Date: 20211021
  Transmission Date: 20220303
  Serious: Yes (Other)
  Sender: FDA-Public Use
  Company Number: IN-PFIZER INC-202101355857

PATIENT
  Age: 63 Year
  Sex: Female

DRUGS (1)
  1. MINIPRESS [Suspect]
     Active Substance: PRAZOSIN HYDROCHLORIDE
     Indication: Blood pressure management
     Dosage: UNK

REACTIONS (2)
  - Dysentery [Unknown]
  - Product residue present [Unknown]
